FAERS Safety Report 4312361-2 (Version None)
Quarter: 2004Q1

REPORT INFORMATION
  Report Type: 
  Country: None (occurrence: None)
  Receive Date: 20040303
  Receipt Date: 20040226
  Transmission Date: 20041129
  Serious: Yes (Hospitalization)
  Sender: FDA-Public Use
  Company Number: STA-AE-04-MTX-079

PATIENT
  Age: 33 Year
  Sex: Male

DRUGS (4)
  1. METHOTREXATE [Suspect]
     Indication: JUVENILE ARTHRITIS
     Dosage: 2.5 MG 8X PER 1 WK, ORAL
     Route: 048
     Dates: start: 20010615
  2. PREDNISONE [Suspect]
     Indication: JUVENILE ARTHRITIS
     Dosage: 8 MG 1X PER 1 DAY, ORAL
     Route: 048
     Dates: start: 19900615
  3. REMICADE [Suspect]
     Indication: JUVENILE ARTHRITIS
     Dosage: 150 MG 1X PER 1 MTH, INTRAVENOUS
     Route: 042
     Dates: start: 20020615
  4. FOLIC ACID [Concomitant]

REACTIONS (1)
  - PILONIDAL CYST [None]
